FAERS Safety Report 9699072 (Version 2)
Quarter: 2013Q4

REPORT INFORMATION
  Report Type: Spontaneous
  Country: US (occurrence: US)
  Receive Date: 20131120
  Receipt Date: 20131223
  Transmission Date: 20140711
  Serious: Yes (Other)
  Sender: FDA-Public Use
  Company Number: US-SHIRE-ALL1-2013-07853

PATIENT
  Age: 46 Year
  Sex: Female
  Weight: 79.37 kg

DRUGS (4)
  1. VYVANSE [Suspect]
     Indication: ATTENTION DEFICIT/HYPERACTIVITY DISORDER
     Dosage: 30 MG, 1X/DAY:QD
     Route: 048
     Dates: start: 2008, end: 2013
  2. VYVANSE [Suspect]
     Dosage: UNK UNK (SPLIT THE DOSE), UNKNOWN (DIDN^T ALWAYS TAKE)
     Route: 048
     Dates: start: 2008
  3. VYVANSE [Suspect]
     Dosage: 40 MG, 1X/DAY:QD
     Route: 048
     Dates: start: 2013
  4. LOMOTIL                            /00034001/ [Concomitant]
     Indication: COLITIS MICROSCOPIC
     Dosage: UNK, 1X/DAY:QD
     Route: 048

REACTIONS (10)
  - Corneal dystrophy [Not Recovered/Not Resolved]
  - Stress [Not Recovered/Not Resolved]
  - Nervousness [Not Recovered/Not Resolved]
  - Sleep disorder [Not Recovered/Not Resolved]
  - Hypertension [Not Recovered/Not Resolved]
  - Anxiety [Not Recovered/Not Resolved]
  - Drug ineffective [Not Recovered/Not Resolved]
  - Wrong technique in drug usage process [Not Recovered/Not Resolved]
  - Inappropriate schedule of drug administration [Not Recovered/Not Resolved]
  - Product quality issue [Unknown]
